FAERS Safety Report 24332925 (Version 1)
Quarter: 2024Q3

REPORT INFORMATION
  Report Type: Spontaneous
  Country: IS (occurrence: IS)
  Receive Date: 20240918
  Receipt Date: 20240918
  Transmission Date: 20241016
  Serious: Yes (Other)
  Sender: PFIZER
  Company Number: None

PATIENT
  Sex: Male

DRUGS (2)
  1. CIBINQO [Suspect]
     Active Substance: ABROCITINIB
     Dosage: 100 MG, DAILY
     Dates: start: 20230501, end: 202404
  2. CIBINQO [Suspect]
     Active Substance: ABROCITINIB
     Dosage: 200 MG, DAILY
     Dates: start: 202404

REACTIONS (5)
  - Haemorrhage urinary tract [Unknown]
  - Malaise [Unknown]
  - Dysuria [Unknown]
  - Hypersomnia [Unknown]
  - Somnolence [Unknown]
